FAERS Safety Report 19182561 (Version 1)
Quarter: 2021Q2

REPORT INFORMATION
  Report Type: Spontaneous
  Country: US (occurrence: US)
  Receive Date: 20210427
  Receipt Date: 20210427
  Transmission Date: 20210717
  Serious: Yes (Hospitalization, Other)
  Sender: FDA-Public Use
  Company Number: US-AUROBINDO-AUR-APL-2021-015759

PATIENT
  Age: 35 Year
  Sex: Female

DRUGS (1)
  1. SEVELAMER CARBONATE. [Suspect]
     Active Substance: SEVELAMER CARBONATE
     Indication: PRODUCT USED FOR UNKNOWN INDICATION
     Dosage: 1600 MILLIGRAM, 3 TIMES A DAY
     Route: 065

REACTIONS (3)
  - Abdominal pain lower [Unknown]
  - Haematochezia [Unknown]
  - Colitis ischaemic [Unknown]
